FAERS Safety Report 7457939-2 (Version None)
Quarter: 2011Q1

REPORT INFORMATION
  Report Type: 
  Country: None (occurrence: None)
  Receive Date: 20110302
  Receipt Date: 20100830
  Transmission Date: 20110831
  Serious: Yes (Death)
  Sender: FDA-Public Use
  Company Number: 163-21880-10083012

PATIENT
  Age: 73 Year
  Sex: Male

DRUGS (7)
  1. FUROSEMIDE [Concomitant]
  2. FLOMAX [Concomitant]
  3. PERCOCET [Concomitant]
  4. REVLIMID [Suspect]
     Indication: AMYLOIDOSIS
     Dosage: 10 MG, M/W/F 21D/28D, PO
     Route: 048
     Dates: start: 20090501, end: 20090801
  5. OMEPRAZOLE [Concomitant]
  6. MIDODRINE HYDROCHLORIDE [Concomitant]
  7. CHLORPROMAZINE [Concomitant]

REACTIONS (2)
  - DEATH [None]
  - NO THERAPEUTIC RESPONSE [None]
